FAERS Safety Report 25486239 (Version 1)
Quarter: 2025Q2

REPORT INFORMATION
  Report Type: Spontaneous
  Country: US (occurrence: US)
  Receive Date: 20250626
  Receipt Date: 20250626
  Transmission Date: 20250716
  Serious: Yes (Other)
  Sender: BRISTOL-MYERS SQUIBB COMPANY
  Company Number: US-BRISTOL-MYERS SQUIBB COMPANY-2025-090676

PATIENT
  Age: 83 Year
  Sex: Male
  Weight: 86.18 kg

DRUGS (1)
  1. REVLIMID [Suspect]
     Active Substance: LENALIDOMIDE
     Indication: Plasma cell myeloma
     Dosage: DAILY FOR 21 DAYS THEN 7 DAYS OFF. REPEAT EVERY 28 DAYS
     Route: 048

REACTIONS (1)
  - Cytopenia [Unknown]

NARRATIVE: CASE EVENT DATE: 20250625
